FAERS Safety Report 13664042 (Version 1)
Quarter: 2017Q2

REPORT INFORMATION
  Report Type: Spontaneous
  Country: US (occurrence: US)
  Receive Date: 20170618
  Receipt Date: 20170618
  Transmission Date: 20170830
  Serious: Yes (Life-Threatening, Hospitalization, Disabling, Other)
  Sender: FDA-Public Use
  Company Number: None

PATIENT
  Age: 34 Year
  Sex: Female
  Weight: 67.5 kg

DRUGS (3)
  1. CLORAZEPATE DIPOTASSIUM. [Suspect]
     Active Substance: CLORAZEPATE DIPOTASSIUM
     Indication: THERAPY CESSATION
     Dosage: ?          QUANTITY:.5 TABLET(S);?
     Route: 048
     Dates: start: 20140701
  2. LORAZEPAM. [Suspect]
     Active Substance: LORAZEPAM
     Indication: ANXIETY
     Route: 048
     Dates: start: 20090101, end: 20140801
  3. TRAXENE (CLORAZEPATE) [Concomitant]

REACTIONS (25)
  - Confusional state [None]
  - Suicidal ideation [None]
  - General physical condition abnormal [None]
  - Pneumothorax [None]
  - Muscle twitching [None]
  - Depersonalisation/derealisation disorder [None]
  - Menstruation irregular [None]
  - Loss of personal independence in daily activities [None]
  - Abasia [None]
  - Derealisation [None]
  - Nervous system disorder [None]
  - Hallucination, olfactory [None]
  - Endocrine disorder [None]
  - Memory impairment [None]
  - Tremor [None]
  - Urinary tract infection [None]
  - Paranoia [None]
  - Parosmia [None]
  - Rash [None]
  - Drug withdrawal syndrome [None]
  - Fear [None]
  - Bedridden [None]
  - Insomnia [None]
  - Obsessive-compulsive disorder [None]
  - Visual impairment [None]

NARRATIVE: CASE EVENT DATE: 20090201
